FAERS Safety Report 25298911 (Version 1)
Quarter: 2025Q2

REPORT INFORMATION
  Report Type: Spontaneous
  Country: JP (occurrence: JP)
  Receive Date: 20250512
  Receipt Date: 20250512
  Transmission Date: 20250716
  Serious: Yes (Other)
  Sender: CHEPLAPHARM
  Company Number: None

PATIENT
  Age: 5 Decade
  Sex: Female

DRUGS (9)
  1. OLANZAPINE [Suspect]
     Active Substance: OLANZAPINE
     Indication: Psychotic disorder
  2. HALOPERIDOL [Concomitant]
     Active Substance: HALOPERIDOL
     Indication: Psychotic disorder
  3. HALOPERIDOL [Concomitant]
     Active Substance: HALOPERIDOL
     Indication: Psychotic disorder
  4. HALOPERIDOL [Concomitant]
     Active Substance: HALOPERIDOL
     Indication: Psychotic disorder
  5. HALOPERIDOL [Concomitant]
     Active Substance: HALOPERIDOL
     Indication: Psychotic disorder
  6. HALOPERIDOL [Concomitant]
     Active Substance: HALOPERIDOL
     Indication: Psychotic disorder
  7. PHENYTOIN [Concomitant]
     Active Substance: PHENYTOIN
     Indication: Frontal lobe epilepsy
  8. PHENYTOIN [Concomitant]
     Active Substance: PHENYTOIN
     Indication: Frontal lobe epilepsy
  9. PHENYTOIN [Concomitant]
     Active Substance: PHENYTOIN
     Indication: Frontal lobe epilepsy

REACTIONS (2)
  - Granulocytopenia [Unknown]
  - Suicide attempt [Unknown]
